FAERS Safety Report 4321889-0 (Version None)
Quarter: 2004Q1

REPORT INFORMATION
  Report Type: 
  Country: None (occurrence: None)
  Receive Date: 20040315
  Receipt Date: 20031204
  Transmission Date: 20041129
  Serious: No
  Sender: FDA-Public Use
  Company Number: 2003183527US

PATIENT
  Age: 86 Year
  Sex: Male

DRUGS (4)
  1. BEXTRA [Suspect]
     Indication: HIP FRACTURE
     Dosage: ORAL
     Route: 048
     Dates: start: 20031023
  2. LIPITOR [Concomitant]
  3. UNSPECIFIED PROSTATE MEDICATION [Concomitant]
  4. TYLENOL (CAPLET) [Concomitant]

REACTIONS (1)
  - FLATULENCE [None]
